FAERS Safety Report 13183072 (Version 2)
Quarter: 2017Q3

REPORT INFORMATION
  Report Type: Spontaneous
  Country: US (occurrence: US)
  Receive Date: 20170203
  Receipt Date: 20170706
  Transmission Date: 20171127
  Serious: Yes (Hospitalization)
  Sender: FDA-Public Use
  Company Number: US-BIOGEN-2017BI00351554

PATIENT
  Sex: Female

DRUGS (1)
  1. AVONEX [Suspect]
     Active Substance: INTERFERON BETA-1A
     Indication: MULTIPLE SCLEROSIS
     Route: 065
     Dates: start: 20011103

REACTIONS (8)
  - Carpal tunnel decompression [Unknown]
  - Peripheral nerve operation [Unknown]
  - Hypoaesthesia [Unknown]
  - Gait inability [Not Recovered/Not Resolved]
  - Road traffic accident [Recovered/Resolved]
  - Musculoskeletal disorder [Unknown]
  - Multiple sclerosis relapse [Unknown]
  - Drug effect incomplete [Unknown]
